FAERS Safety Report 6853897-X (Version None)
Quarter: 2010Q3

REPORT INFORMATION
  Report Type: 
  Country: None (occurrence: None)
  Receive Date: 20100717
  Receipt Date: 20080123
  Transmission Date: 20110219
  Serious: No
  Sender: FDA-Public Use
  Company Number: US-PFIZER INC-2007105629

PATIENT
  Sex: Female
  Weight: 59 kg

DRUGS (5)
  1. CHANTIX [Suspect]
     Indication: SMOKING CESSATION THERAPY
     Dates: start: 20071101
  2. PREDNISONE [Concomitant]
  3. NABUMETONE [Concomitant]
  4. KLONOPIN [Concomitant]
  5. VICODIN [Concomitant]
     Indication: PAIN

REACTIONS (4)
  - INCORRECT DRUG DOSAGE FORM ADMINISTERED [None]
  - MALAISE [None]
  - NAUSEA [None]
  - VOMITING [None]
